FAERS Safety Report 7634018-2 (Version None)
Quarter: 2011Q3

REPORT INFORMATION
  Report Type: 
  Country: None (occurrence: None)
  Receive Date: 20110725
  Receipt Date: 20110718
  Transmission Date: 20111222
  Serious: Yes (Other)
  Sender: FDA-Public Use
  Company Number: US-JNJFOC-20110708081

PATIENT
  Sex: Female
  Weight: 77.11 kg

DRUGS (8)
  1. AXERT [Suspect]
     Indication: CONVULSION
     Dosage: 1 TABLET AS NEEDED EVERY 2 HOURS
     Route: 048
     Dates: start: 20050101
  2. TOPROL-XL [Concomitant]
     Indication: ARRHYTHMIA
     Route: 048
  3. AXERT [Suspect]
     Dosage: 1 TABLET AS NEEDED EVERY 2 HOURS
     Route: 048
     Dates: start: 20050101
  4. AXERT [Suspect]
     Indication: HEADACHE
     Dosage: 1 TABLET AS NEEDED EVERY 2 HOURS
     Route: 048
     Dates: start: 20050101
  5. AXERT [Suspect]
     Dosage: 1 TABLET AS NEEDED EVERY 2 HOURS
     Route: 048
     Dates: start: 20050101
  6. TOPAMAX [Suspect]
     Indication: CONVULSION
     Route: 048
     Dates: end: 20050101
  7. TOPAMAX [Suspect]
     Indication: HEADACHE
     Route: 048
     Dates: end: 20050101
  8. PREMARIN [Concomitant]
     Indication: HORMONE REPLACEMENT THERAPY
     Route: 048

REACTIONS (9)
  - WEIGHT INCREASED [None]
  - INTENTIONAL DRUG MISUSE [None]
  - DRUG INEFFECTIVE [None]
  - HEADACHE [None]
  - HYPOTHYROIDISM [None]
  - CONVULSION [None]
  - URTICARIA [None]
  - BODY HEIGHT DECREASED [None]
  - PHARYNGEAL OEDEMA [None]
